FAERS Safety Report 8440373-6 (Version None)
Quarter: 2012Q2

REPORT INFORMATION
  Report Type: 
  Country: None (occurrence: None)
  Receive Date: 20120615
  Receipt Date: 20120608
  Transmission Date: 20120825
  Serious: Yes (Death, Hospitalization)
  Sender: FDA-Public Use
  Company Number: FR-CELGENEUS-056-21880-12050496

PATIENT
  Age: 85 Year
  Sex: Male

DRUGS (12)
  1. REVLIMID [Suspect]
     Indication: MULTIPLE MYELOMA
     Route: 048
     Dates: end: 20120417
  2. REPAGLINIDE [Concomitant]
     Route: 065
  3. CRESTOR [Concomitant]
     Route: 065
  4. MODOPAR [Concomitant]
     Route: 065
  5. CALCIT D3 [Concomitant]
     Route: 065
  6. DEDROGYL [Concomitant]
     Route: 065
  7. NEXIUM [Concomitant]
     Route: 065
  8. VERACOLATE [Concomitant]
     Route: 065
  9. AMBER [Concomitant]
     Route: 065
  10. ARANESP [Concomitant]
     Route: 065
  11. FERROUS SULFATE TAB [Concomitant]
     Route: 065
  12. LASIX [Concomitant]
     Route: 065

REACTIONS (2)
  - DEATH [None]
  - GENERAL PHYSICAL HEALTH DETERIORATION [None]
